FAERS Safety Report 14632436 (Version 2)
Quarter: 2018Q2

REPORT INFORMATION
  Report Type: Spontaneous
  Country: JP (occurrence: JP)
  Receive Date: 20180313
  Receipt Date: 20180410
  Transmission Date: 20180711
  Serious: Yes (Other)
  Sender: FDA-Public Use
  Company Number: JP-MYLANLABS-2018M1016129

PATIENT
  Age: 52 Year
  Sex: Male
  Weight: 59 kg

DRUGS (26)
  1. FENTANYL. [Suspect]
     Active Substance: FENTANYL
     Dosage: 500 MICROG/H (EQUIVALENT TO ORAL MORPHINE AT 1200 MG/DAY) AND THEN STARTED STRONG DOSE OF FENTANY...
     Route: 062
  2. ACETAMINOPHEN. [Concomitant]
     Active Substance: ACETAMINOPHEN
     Indication: CANCER PAIN
     Dosage: 2400MG/DAY
     Route: 065
  3. KETAMINE [Concomitant]
     Active Substance: KETAMINE
     Dosage: HIGH DOSE OF KETAMINE SYRUP AT 100 MG/DAY
     Route: 048
  4. CELECOXIB. [Concomitant]
     Active Substance: CELECOXIB
     Indication: CANCER PAIN
     Dosage: 200MG/DAY
     Route: 065
  5. CARBAMAZEPINE. [Suspect]
     Active Substance: CARBAMAZEPINE
     Indication: CANCER PAIN
     Dosage: 400MG/DAY
     Route: 065
  6. FOLINIC ACID [Concomitant]
     Active Substance: LEUCOVORIN
     Indication: METASTASES TO LUNG
     Route: 065
  7. FLUOROURACIL. [Concomitant]
     Active Substance: FLUOROURACIL
     Indication: METASTASES TO LUNG
     Route: 065
  8. OXYCODONE [Suspect]
     Active Substance: OXYCODONE
     Indication: CANCER PAIN
     Dosage: SLOW RELEASE OXYCODONE; INITIAL DOSAGE WAS UNKNOWN AND THEN INCREASED
     Route: 048
  9. PREGABALIN. [Concomitant]
     Active Substance: PREGABALIN
     Dosage: 150MG/DAY
     Route: 065
  10. TRAMADOL. [Concomitant]
     Active Substance: TRAMADOL
     Dosage: 300 MG/DAY
     Route: 065
  11. BEVACIZUMAB. [Concomitant]
     Active Substance: BEVACIZUMAB
     Indication: METASTASES TO BONE
     Route: 065
  12. FOLINIC ACID [Concomitant]
     Active Substance: LEUCOVORIN
     Indication: METASTASES TO BONE
     Route: 065
  13. KETAMINE [Concomitant]
     Active Substance: KETAMINE
     Dosage: KETAMINE SYRUP ADMINISTERED AT 50 MG/DAY
     Route: 048
  14. MORPHINE HYDROCHLORIDE [Concomitant]
     Active Substance: MORPHINE HYDROCHLORIDE
     Indication: CANCER PAIN
     Route: 058
  15. OXYCODONE [Suspect]
     Active Substance: OXYCODONE
     Dosage: SLOW RELEASE OXYCODONE; INCREASED TO A DOSE OF 480MG AND FURTHER INCREASED TO AN UNKNOWN DOSE
     Route: 048
  16. PREGABALIN. [Concomitant]
     Active Substance: PREGABALIN
     Indication: NEURALGIA
     Dosage: 30MG/DAY
     Route: 065
  17. PREGABALIN. [Concomitant]
     Active Substance: PREGABALIN
     Dosage: 300MG/DAY
     Route: 065
  18. BEVACIZUMAB. [Concomitant]
     Active Substance: BEVACIZUMAB
     Indication: METASTASES TO LUNG
     Route: 065
  19. FLUOROURACIL. [Concomitant]
     Active Substance: FLUOROURACIL
     Indication: METASTASES TO BONE
     Route: 065
  20. MORPHINE [Concomitant]
     Active Substance: MORPHINE
     Indication: CANCER PAIN
     Dosage: LOW-RELEASE ORAL MORPHINE AT 60MG
     Route: 048
  21. DULOXETINE. [Suspect]
     Active Substance: DULOXETINE
     Indication: CANCER PAIN
     Dosage: 75MG/DAY
     Route: 065
  22. TRAMADOL. [Concomitant]
     Active Substance: TRAMADOL
     Indication: NEURALGIA
     Dosage: 200MG/DAY
     Route: 065
  23. IRINOTECAN [Concomitant]
     Active Substance: IRINOTECAN
     Indication: METASTASES TO LUNG
     Route: 065
  24. KETAMINE [Concomitant]
     Active Substance: KETAMINE
     Indication: CANCER PAIN
     Route: 042
  25. FENTANYL. [Suspect]
     Active Substance: FENTANYL
     Indication: CANCER PAIN
     Dosage: 300 MICROG/H
     Route: 062
  26. OXALIPLATIN. [Concomitant]
     Active Substance: OXALIPLATIN
     Indication: METASTASES TO BONE
     Route: 065

REACTIONS (3)
  - Somnolence [Unknown]
  - Drug tolerance [Unknown]
  - Balance disorder [Unknown]
